FAERS Safety Report 25018273 (Version 4)
Quarter: 2025Q2

REPORT INFORMATION
  Report Type: Spontaneous
  Country: US (occurrence: US)
  Receive Date: 20250227
  Receipt Date: 20250609
  Transmission Date: 20250717
  Serious: Yes (Life-Threatening, Hospitalization, Disabling, Congenital Anomaly, Other)
  Sender: PFIZER
  Company Number: US-PFIZER INC-202500043004

PATIENT
  Age: 14 Year
  Sex: Female
  Weight: 31.75 kg

DRUGS (12)
  1. OXBRYTA [Suspect]
     Active Substance: VOXELOTOR
     Indication: Sickle cell anaemia
     Dosage: 500 MG, 2X/DAY
     Route: 048
     Dates: start: 202310, end: 202401
  2. OXBRYTA [Suspect]
     Active Substance: VOXELOTOR
     Dosage: 500 MG, 2X/DAY
     Route: 048
     Dates: start: 202407, end: 202409
  3. OXBRYTA [Suspect]
     Active Substance: VOXELOTOR
     Dosage: 500 MG, 2X/DAY
     Route: 048
     Dates: start: 20240711, end: 202501
  4. OXBRYTA [Suspect]
     Active Substance: VOXELOTOR
     Dosage: 500 MG, 2X/DAY
     Route: 048
  5. HYDROXYUREA [Concomitant]
     Active Substance: HYDROXYUREA
     Indication: Sickle cell disease
     Dosage: 1000 MG, DAILY
  6. HYDROXYUREA [Concomitant]
     Active Substance: HYDROXYUREA
     Dates: start: 20240905
  7. HYDROXYUREA [Concomitant]
     Active Substance: HYDROXYUREA
     Dates: end: 202411
  8. ENDARI [Concomitant]
     Active Substance: GLUTAMINE
     Indication: Sickle cell disease
     Dates: end: 202411
  9. IBUPROFEN [Concomitant]
     Active Substance: IBUPROFEN
  10. PEPCID [Concomitant]
     Active Substance: FAMOTIDINE
     Dosage: AT BEDTIME
     Dates: start: 20240905
  11. TYLENOL [Concomitant]
     Active Substance: ACETAMINOPHEN
     Dates: start: 20240904
  12. ACETAMINOPHEN\HYDROCODONE [Concomitant]
     Active Substance: ACETAMINOPHEN\HYDROCODONE
     Indication: Pain
     Route: 048

REACTIONS (17)
  - Sickle cell anaemia with crisis [Recovering/Resolving]
  - Osteonecrosis [Not Recovered/Not Resolved]
  - Dyspnoea [Unknown]
  - Abdominal pain [Recovering/Resolving]
  - Lymphadenopathy [Recovering/Resolving]
  - Abdominal pain upper [Recovering/Resolving]
  - Drug hypersensitivity [Recovering/Resolving]
  - Illness [Not Recovered/Not Resolved]
  - Hyperbilirubinaemia [Recovering/Resolving]
  - Anaemia [Recovering/Resolving]
  - Bone density decreased [Recovering/Resolving]
  - Constipation [Recovering/Resolving]
  - Swelling face [Unknown]
  - Nausea [Recovered/Resolved]
  - Vomiting [Recovered/Resolved]
  - Urinary tract infection [Unknown]
  - Off label use [Unknown]

NARRATIVE: CASE EVENT DATE: 20230101
